FAERS Safety Report 13366087 (Version 1)
Quarter: 2017Q1

REPORT INFORMATION
  Report Type: Spontaneous
  Country: US (occurrence: US)
  Receive Date: 20170323
  Receipt Date: 20170323
  Transmission Date: 20170429
  Serious: No
  Sender: FDA-Public Use
  Company Number: US-ALLERGAN-1706025US

PATIENT
  Age: 66 Year
  Sex: Female

DRUGS (1)
  1. VIBERZI [Suspect]
     Active Substance: ELUXADOLINE
     Indication: DIARRHOEA
     Dosage: 75 MG, QD
     Route: 048
     Dates: start: 20170208

REACTIONS (5)
  - Off label use [Unknown]
  - Abdominal pain [Not Recovered/Not Resolved]
  - Diarrhoea [Recovering/Resolving]
  - Abdominal discomfort [Not Recovered/Not Resolved]
  - Inappropriate schedule of drug administration [Unknown]

NARRATIVE: CASE EVENT DATE: 20170208
